FAERS Safety Report 9894122 (Version 1)
Quarter: 2014Q1

REPORT INFORMATION
  Report Type: Spontaneous
  Country: FR (occurrence: FR)
  Receive Date: 20140213
  Receipt Date: 20140213
  Transmission Date: 20141002
  Serious: Yes (Hospitalization, Other)
  Sender: FDA-Public Use
  Company Number: FR-ASTRAZENECA-2014SE08784

PATIENT
  Age: 13049 Day
  Sex: Female

DRUGS (26)
  1. INEXIUM [Suspect]
     Route: 048
     Dates: end: 201401
  2. METHOTREXATE MYLAN [Interacting]
     Route: 042
     Dates: start: 20140115, end: 20140115
  3. ETOPOSIDE [Concomitant]
     Route: 042
     Dates: start: 20131207, end: 20131207
  4. ETOPOSIDE [Concomitant]
     Route: 042
     Dates: start: 20131213, end: 20131213
  5. ETOPOSIDE [Concomitant]
     Route: 042
     Dates: start: 20131220, end: 20131220
  6. ETOPOSIDE [Concomitant]
     Route: 042
     Dates: start: 20131227, end: 20131227
  7. ETOPOSIDE [Concomitant]
     Route: 042
     Dates: start: 20140115, end: 20140115
  8. CORTICOIDS [Concomitant]
     Route: 065
     Dates: start: 201312
  9. STILNOX [Concomitant]
     Route: 065
     Dates: end: 201401
  10. PENTACARINAT [Concomitant]
     Route: 065
  11. ONDANSETRON [Concomitant]
     Route: 042
     Dates: start: 20140115, end: 20140115
  12. ONDANSETRON [Concomitant]
     Route: 042
     Dates: start: 20140116, end: 20140116
  13. PARACETAMOL [Concomitant]
     Route: 065
     Dates: start: 20140115, end: 20140115
  14. PARACETAMOL [Concomitant]
     Route: 065
     Dates: start: 20140116, end: 20140116
  15. PRIMPERAN [Concomitant]
     Route: 042
     Dates: start: 20140115, end: 20140115
  16. SOLUPRED [Concomitant]
     Route: 065
     Dates: start: 20140115, end: 20140115
  17. SOLUPRED [Concomitant]
     Route: 065
     Dates: start: 20140116, end: 20140116
  18. ZELITREX [Concomitant]
     Route: 065
  19. ZELITREX [Concomitant]
     Route: 065
     Dates: start: 20140115, end: 20140115
  20. ZELITREX [Concomitant]
     Route: 065
     Dates: start: 20140116, end: 20140116
  21. IMOVANE [Concomitant]
     Route: 065
     Dates: start: 20140115, end: 20140115
  22. HYDROCORTISONE HEMISUCCINATE [Concomitant]
     Route: 042
     Dates: start: 20140116, end: 20140116
  23. DEXAMETHASONE MYLAN [Concomitant]
     Route: 065
     Dates: start: 20140117, end: 20140117
  24. DEXAMETHASONE MYLAN [Concomitant]
     Route: 065
     Dates: start: 20140119, end: 20140119
  25. LEDERFOLINE [Concomitant]
     Route: 065
     Dates: start: 20140117, end: 20140117
  26. CEFTRIAXONE [Concomitant]
     Route: 065
     Dates: start: 20140117, end: 20140117

REACTIONS (11)
  - Drug interaction [Not Recovered/Not Resolved]
  - Bacterial sepsis [Unknown]
  - Epstein-Barr virus infection [Unknown]
  - Lymphocyte count increased [Unknown]
  - Histiocytosis haematophagic [Unknown]
  - Renal failure acute [Unknown]
  - Fungal sepsis [Unknown]
  - Hepatitis [Unknown]
  - Pancytopenia [Not Recovered/Not Resolved]
  - Cough [Unknown]
  - Hypotension [Unknown]
